FAERS Safety Report 9517324 (Version 1)
Quarter: 2013Q1

REPORT INFORMATION
  Report Type: Spontaneous
  Country: US (occurrence: None)
  Receive Date: 20130305
  Receipt Date: 20130305
  Transmission Date: 20140127
  Serious: Yes (Other)
  Sender: FDA-Public Use
  Company Number: 163-21880-12122076

PATIENT
  Age: 59 Year
  Sex: Male

DRUGS (9)
  1. REVLIMID (LENALIDOMIDE) (CAPSULES) [Suspect]
     Indication: PLASMA CELL MYELOMA
     Dosage: 21 IN 21 D
     Route: 048
     Dates: start: 20120612, end: 20121213
  2. METFORMIN (METFORMIN)(UNKNOWN) [Concomitant]
  3. INSULIN (INSULIN) (UNKNOWN) [Concomitant]
  4. NEUROTRONIN (NEUROTRONIN) (UNKNOWN) [Concomitant]
  5. DEXAMETHASONE (DEXAMETHASONE) (UNKNOWN) [Concomitant]
  6. VALACYCLOVIR (VALACYCLIOVIR) (UNKNOWN) [Concomitant]
  7. WARFARIN (WARFARIN) (UNKNOWN) [Concomitant]
  8. LIDODERM (LIDCOCAINE) (POULTICE OR PATCH) [Concomitant]
  9. FENTANYL (FENTANYL) (POULTICE OR PATCH) [Concomitant]

REACTIONS (1)
  - Malaise [None]
